FAERS Safety Report 8552269 (Version 4)
Quarter: 2023Q2

REPORT INFORMATION
  Report Type: Spontaneous
  Country: US (occurrence: US)
  Receive Date: 20120508
  Receipt Date: 20230414
  Transmission Date: 20230722
  Serious: Yes (Other)
  Sender: FDA-Public Use
  Company Number: US-ELI_LILLY_AND_COMPANY-US201204008759

PATIENT
  Age: 62 Year
  Sex: Female

DRUGS (7)
  1. PROZAC [Suspect]
     Active Substance: FLUOXETINE HYDROCHLORIDE
     Indication: Major depression
     Dosage: 20 MG, QD
     Route: 065
     Dates: start: 1992, end: 2004
  2. PROZAC [Suspect]
     Active Substance: FLUOXETINE HYDROCHLORIDE
     Indication: Migraine
     Dosage: 40 MG, QD
     Route: 065
     Dates: start: 2004
  3. PROZAC [Suspect]
     Active Substance: FLUOXETINE HYDROCHLORIDE
     Indication: Anxiety
  4. LIVALO [Concomitant]
     Active Substance: PITAVASTATIN CALCIUM
  5. OXYCONTIN [Concomitant]
     Active Substance: OXYCODONE HYDROCHLORIDE
  6. VICODIN [Concomitant]
     Active Substance: ACETAMINOPHEN\HYDROCODONE BITARTRATE
  7. OXYCODONE [Suspect]
     Active Substance: OXYCODONE
     Indication: Product used for unknown indication
     Dosage: UNK UNK, UNKNOWN
     Route: 065

REACTIONS (7)
  - Hodgkin^s disease stage III [Recovered/Resolved]
  - Metastases to lung [Unknown]
  - Pain [Unknown]
  - Spinal stenosis [Unknown]
  - Feeling abnormal [Unknown]
  - Headache [Recovering/Resolving]
  - Off label use [Recovered/Resolved]

NARRATIVE: CASE EVENT DATE: 19970101
